FAERS Safety Report 14764208 (Version 22)
Quarter: 2021Q1

REPORT INFORMATION
  Report Type: Spontaneous
  Country: US (occurrence: US)
  Receive Date: 20180416
  Receipt Date: 20210121
  Transmission Date: 20210419
  Serious: Yes (Hospitalization, Other)
  Sender: FDA-Public Use
  Company Number: US-PFIZER INC-2018152647

PATIENT
  Age: 60 Year
  Sex: Female
  Weight: 118 kg

DRUGS (13)
  1. CITALOPRAM [Concomitant]
     Active Substance: CITALOPRAM HYDROBROMIDE
     Dosage: 40 MG, DAILY
     Dates: start: 2001
  2. MIRTAZAPINE. [Concomitant]
     Active Substance: MIRTAZAPINE
     Dosage: 15 MG, 1X/DAY (AT NIGHT)
     Dates: start: 2010
  3. EFFEXOR XR [Suspect]
     Active Substance: VENLAFAXINE HYDROCHLORIDE
     Dosage: 75 MG, 3X/DAY (75MG; TAKE THREE DAILY BY MOUTH)
     Route: 048
  4. GABAPENTIN. [Concomitant]
     Active Substance: GABAPENTIN
     Indication: ANXIETY
     Dosage: 300 MG, 1X/DAY
     Route: 048
     Dates: start: 2018
  5. EFFEXOR XR [Suspect]
     Active Substance: VENLAFAXINE HYDROCHLORIDE
     Indication: ANXIETY
     Dosage: 150 MG, 1X/DAY
     Route: 048
     Dates: start: 2019
  6. DEPAKOTE [Concomitant]
     Active Substance: DIVALPROEX SODIUM
     Dosage: UNK
     Dates: start: 2019
  7. SEROQUEL [Concomitant]
     Active Substance: QUETIAPINE FUMARATE
     Dosage: 450 MG, 1X/DAY
     Dates: start: 2001
  8. EFFEXOR XR [Suspect]
     Active Substance: VENLAFAXINE HYDROCHLORIDE
     Indication: BIPOLAR DISORDER
     Dosage: 75 MG, 1X/DAY
     Route: 048
  9. EFFEXOR XR [Suspect]
     Active Substance: VENLAFAXINE HYDROCHLORIDE
     Indication: DEPRESSION
     Dosage: 150 MG, 1X/DAY
     Route: 048
  10. PRIMIDONE. [Concomitant]
     Active Substance: PRIMIDONE
     Dosage: 250 MG, 1X/DAY (4? 50MG PER NIGHT)
     Dates: start: 2016
  11. EFFEXOR XR [Suspect]
     Active Substance: VENLAFAXINE HYDROCHLORIDE
     Indication: PANIC ATTACK
     Dosage: 225 MG, DAILY, (THREE 75MG OF EFFEXOR EACH DAY/75 MG THREE CAPSULES A DAY)
  12. GABAPENTIN. [Concomitant]
     Active Substance: GABAPENTIN
     Indication: PANIC ATTACK
  13. EFFEXOR XR [Suspect]
     Active Substance: VENLAFAXINE HYDROCHLORIDE
     Indication: SEASONAL AFFECTIVE DISORDER
     Dosage: 225 MG, 1X/DAY (THREE 75 MG, EVERY MORNING)
     Route: 048
     Dates: start: 201907, end: 2019

REACTIONS (22)
  - Lung disorder [Unknown]
  - Abnormal behaviour [Unknown]
  - Movement disorder [Unknown]
  - Renal pain [Unknown]
  - Paralysis [Unknown]
  - Intestinal obstruction [Unknown]
  - Illness [Unknown]
  - Fall [Unknown]
  - Dysstasia [Unknown]
  - Blood magnesium decreased [Unknown]
  - Blood sodium decreased [Unknown]
  - Weight decreased [Unknown]
  - Pneumonia [Recovered/Resolved]
  - Hypersomnia [Unknown]
  - Bipolar disorder [Unknown]
  - Cardiac disorder [Recovering/Resolving]
  - Oxygen therapy [Not Recovered/Not Resolved]
  - Arthritis [Unknown]
  - Anxiety [Unknown]
  - Renal disorder [Unknown]
  - Weight increased [Unknown]
  - Hallucination, visual [Recovered/Resolved]

NARRATIVE: CASE EVENT DATE: 2010
